FAERS Safety Report 14947304 (Version 2)
Quarter: 2018Q2

REPORT INFORMATION
  Report Type: Spontaneous
  Country: CA (occurrence: CA)
  Receive Date: 20180529
  Receipt Date: 20180613
  Transmission Date: 20180711
  Serious: Yes (Other)
  Sender: FDA-Public Use
  Company Number: CA-PFIZER INC-2018210806

PATIENT
  Age: 48 Year
  Sex: Female

DRUGS (1)
  1. PRISTIQ EXTENDED-RELEASE [Suspect]
     Active Substance: DESVENLAFAXINE SUCCINATE
     Dosage: 50 MG, UNK
     Dates: end: 201711

REACTIONS (7)
  - Feeling abnormal [Recovered/Resolved]
  - Nausea [Recovered/Resolved]
  - Weight increased [Recovering/Resolving]
  - Malaise [Recovered/Resolved]
  - Mental impairment [Unknown]
  - Impaired work ability [Recovered/Resolved]
  - Thinking abnormal [Unknown]
